FAERS Safety Report 11761562 (Version 1)
Quarter: 2015Q4

REPORT INFORMATION
  Report Type: Spontaneous
  Country: US (occurrence: US)
  Receive Date: 20151120
  Receipt Date: 20151120
  Transmission Date: 20160304
  Serious: No
  Sender: FDA-Public Use
  Company Number: US-ELI_LILLY_AND_COMPANY-US201211004488

PATIENT
  Age: 64 Year
  Sex: Male

DRUGS (1)
  1. FORTEO [Suspect]
     Active Substance: TERIPARATIDE
     Indication: OSTEOPOROSIS
     Dosage: 20 UG, QD
     Route: 058
     Dates: start: 201108

REACTIONS (13)
  - Gait disturbance [Unknown]
  - Bone marrow oedema [Unknown]
  - Synovial cyst [Unknown]
  - Tendon rupture [Unknown]
  - Meniscus injury [Unknown]
  - Pain [Not Recovered/Not Resolved]
  - Joint effusion [Unknown]
  - Fracture [Unknown]
  - Lower limb fracture [Unknown]
  - Peripheral swelling [Unknown]
  - Chondromalacia [Unknown]
  - Ligament rupture [Unknown]
  - Localised oedema [Unknown]

NARRATIVE: CASE EVENT DATE: 20121105
